FAERS Safety Report 4916783-8 (Version None)
Quarter: 2006Q1

REPORT INFORMATION
  Report Type: 
  Country: None (occurrence: None)
  Receive Date: 20060220
  Receipt Date: 20051025
  Transmission Date: 20060701
  Serious: Yes (Hospitalization, Disabling)
  Sender: FDA-Public Use
  Company Number: US-ROCHE-422740

PATIENT
  Age: 18 Year
  Sex: Female
  Weight: 63.5 kg

DRUGS (1)
  1. ACCUTANE [Suspect]
     Indication: ACNE
     Route: 048
     Dates: start: 19990615, end: 20000615

REACTIONS (31)
  - ABORTION INDUCED [None]
  - ANAEMIA [None]
  - ANHEDONIA [None]
  - ANXIETY [None]
  - APPENDICECTOMY [None]
  - ATELECTASIS [None]
  - BACK PAIN [None]
  - BLEEDING TIME PROLONGED [None]
  - BLOOD GLUCOSE INCREASED [None]
  - BRONCHIAL HYPERACTIVITY [None]
  - COLITIS [None]
  - COLITIS ULCERATIVE [None]
  - DRUG EXPOSURE DURING PREGNANCY [None]
  - GASTROINTESTINAL DISORDER [None]
  - GLOMERULONEPHRITIS PROLIFERATIVE [None]
  - HAEMATOCRIT DECREASED [None]
  - HAEMOGLOBIN DECREASED [None]
  - HYPOAESTHESIA [None]
  - INFLAMMATORY BOWEL DISEASE [None]
  - INTESTINAL HAEMORRHAGE [None]
  - LUNG HYPERINFLATION [None]
  - MULTI-ORGAN DISORDER [None]
  - MUSCULOSKELETAL PAIN [None]
  - PNEUMONIA [None]
  - PREGNANCY [None]
  - RED BLOOD CELL COUNT DECREASED [None]
  - RENAL TUBULAR ATROPHY [None]
  - SINUS DISORDER [None]
  - URINARY RETENTION [None]
  - URINARY TRACT INFECTION [None]
  - URINE KETONE BODY PRESENT [None]
